FAERS Safety Report 8029411-2 (Version None)
Quarter: 2012Q1

REPORT INFORMATION
  Report Type: 
  Country: None (occurrence: None)
  Receive Date: 20120106
  Receipt Date: 20111228
  Transmission Date: 20120608
  Serious: Yes (Other)
  Sender: FDA-Public Use
  Company Number: US-ASTRAZENECA-2011SE64471

PATIENT
  Age: 54 Year
  Sex: Female
  Weight: 59 kg

DRUGS (23)
  1. SEROQUEL [Suspect]
     Indication: NERVE INJURY
     Route: 048
     Dates: start: 20080101
  2. CRESTOR [Suspect]
     Indication: BLOOD CHOLESTEROL INCREASED
     Route: 048
     Dates: start: 20090101
  3. CRESTOR [Suspect]
     Indication: HYPERTENSION
     Route: 048
     Dates: start: 20090101
  4. ATIVAN [Concomitant]
     Indication: DEPRESSION
     Route: 048
     Dates: start: 20070101
  5. MORPHINE [Concomitant]
     Indication: NERVE INJURY
     Route: 048
     Dates: start: 20090101
  6. XANAX [Concomitant]
     Indication: ANXIETY
  7. SEROQUEL [Suspect]
     Indication: DEPRESSION
     Route: 048
     Dates: start: 20080101
  8. LAMICTAL [Concomitant]
     Indication: NERVE INJURY
     Route: 048
     Dates: start: 20110901
  9. ATENOLOL [Concomitant]
     Indication: HYPERTENSION
     Route: 048
     Dates: start: 20100101
  10. MORPHINE [Concomitant]
     Indication: PAIN
     Route: 048
     Dates: start: 20090101
  11. MORPHINE FAST ACTING [Concomitant]
     Indication: PAIN
     Route: 048
     Dates: start: 20080101
  12. PHENERGAN [Concomitant]
     Indication: NAUSEA
     Route: 048
  13. LAMICTAL [Concomitant]
     Indication: CONVULSION
     Route: 048
     Dates: start: 20110901
  14. ZOLOFT [Concomitant]
     Indication: DEPRESSION
     Route: 048
  15. ASPIRIN [Concomitant]
     Indication: CARDIAC DISORDER
     Route: 048
  16. MORPHINE [Concomitant]
     Indication: FIBROMYALGIA
     Route: 048
     Dates: start: 20090101
  17. FIORICET [Concomitant]
     Indication: MIGRAINE
     Dosage: AS NEEDED
     Route: 048
  18. NEXIUM [Suspect]
     Indication: DYSPEPSIA
     Route: 048
     Dates: start: 20100101
  19. CARAFATE [Concomitant]
     Indication: OESOPHAGEAL DISORDER
     Dosage: 10 ML TAKEN EVERY 4 HOURS
     Route: 048
  20. NEXIUM [Suspect]
     Indication: OESOPHAGEAL CARCINOMA
     Route: 048
     Dates: start: 20100101
  21. FIORICET [Concomitant]
     Indication: HEADACHE
     Dosage: AS NEEDED
     Route: 048
  22. XANAX [Concomitant]
     Indication: DEPRESSION
  23. NITROGLYCERIN [Concomitant]
     Dosage: AS NEEDED EVERY 4-6 HOURS
     Route: 048

REACTIONS (5)
  - LOWER LIMB FRACTURE [None]
  - OESOPHAGEAL CARCINOMA [None]
  - PARAESTHESIA [None]
  - PAIN [None]
  - AMNESIA [None]
